FAERS Safety Report 10598008 (Version 1)
Quarter: 2014Q4

REPORT INFORMATION
  Report Type: Spontaneous
  Country: US (occurrence: None)
  Receive Date: 20141120
  Receipt Date: 20141120
  Transmission Date: 20150529
  Serious: Yes (Life-Threatening)
  Sender: FDA-Public Use
  Company Number: None

PATIENT
  Age: 67 Year
  Sex: Female
  Weight: 81.65 kg

DRUGS (2)
  1. CORTICOSTEROID [Suspect]
     Active Substance: CORTICOSTEROID NOS
     Indication: CERVICAL SPINAL STENOSIS
     Dosage: INJECTED INTO SPINAL AREA
     Route: 042
     Dates: start: 20140501
  2. CORTICOSTEROID [Suspect]
     Active Substance: CORTICOSTEROID NOS
     Indication: SPINAL DISORDER
     Dosage: INJECTED INTO SPINAL AREA
     Route: 042
     Dates: start: 20140501

REACTIONS (6)
  - Respiratory arrest [None]
  - Syncope [None]
  - Ventricular tachycardia [None]
  - Pulse absent [None]
  - Injection site pain [None]
  - Tremor [None]

NARRATIVE: CASE EVENT DATE: 20140503
